FAERS Safety Report 13535967 (Version 1)
Quarter: 2017Q2

REPORT INFORMATION
  Report Type: Report from Study
  Country: US (occurrence: US)
  Receive Date: 20170511
  Receipt Date: 20170511
  Transmission Date: 20170830
  Serious: Yes (Death, Other)
  Sender: FDA-Public Use
  Company Number: US-REGENERON PHARMACEUTICALS, INC.-2017-14177

PATIENT

DRUGS (14)
  1. EYLEA [Suspect]
     Active Substance: AFLIBERCEPT
     Dosage: VARIOUS OD AND OS
     Dates: start: 20150422, end: 20150422
  2. EYLEA [Suspect]
     Active Substance: AFLIBERCEPT
     Dosage: VARIOUS OD AND OS
     Dates: start: 20151008, end: 20151008
  3. EYLEA [Suspect]
     Active Substance: AFLIBERCEPT
     Indication: PRODUCT USED FOR UNKNOWN INDICATION
     Dosage: VARIOUS OD AND OS
     Dates: start: 20141204, end: 20141204
  4. EYLEA [Suspect]
     Active Substance: AFLIBERCEPT
     Dosage: VARIOUS OD AND OS
     Dates: start: 20150806, end: 20150806
  5. EYLEA [Suspect]
     Active Substance: AFLIBERCEPT
     Dosage: VARIOUS OD AND OS
     Dates: start: 20160211, end: 20160211
  6. EYLEA [Suspect]
     Active Substance: AFLIBERCEPT
     Dosage: UNK
  7. EYLEA [Suspect]
     Active Substance: AFLIBERCEPT
     Dosage: VARIOUS OD AND OS
     Dates: start: 20150314, end: 20150314
  8. EYLEA [Suspect]
     Active Substance: AFLIBERCEPT
     Dosage: VARIOUS OD AND OS
     Dates: start: 20150506, end: 20150506
  9. EYLEA [Suspect]
     Active Substance: AFLIBERCEPT
     Dosage: VARIOUS OD AND OS
     Dates: start: 20150129, end: 20150129
  10. EYLEA [Suspect]
     Active Substance: AFLIBERCEPT
     Dosage: VARIOUS OD AND OS
     Dates: start: 20150924, end: 20150924
  11. EYLEA [Suspect]
     Active Substance: AFLIBERCEPT
     Dosage: VARIOUS OD AND OS
     Dates: start: 20151029, end: 20151029
  12. EYLEA [Suspect]
     Active Substance: AFLIBERCEPT
     Dosage: VARIOUS OD AND OS
     Dates: start: 20150611, end: 20150611
  13. EYLEA [Suspect]
     Active Substance: AFLIBERCEPT
     Dosage: VARIOUS OD AND OS
     Dates: start: 20150723, end: 20150723
  14. EYLEA [Suspect]
     Active Substance: AFLIBERCEPT
     Dosage: VARIOUS OD AND OS
     Dates: start: 20151210, end: 20151210

REACTIONS (1)
  - Death [Fatal]
